FAERS Safety Report 25234956 (Version 2)
Quarter: 2025Q2

REPORT INFORMATION
  Report Type: Spontaneous
  Country: US (occurrence: US)
  Receive Date: 20250424
  Receipt Date: 20250516
  Transmission Date: 20250717
  Serious: No
  Sender: SPECGX
  Company Number: US-SPECGX-T202500771

PATIENT

DRUGS (2)
  1. DEXTROAMPHETAMINE SACCHARATE, AMPHETAMINE ASPARTATE, DEXTROAMPHETAMINE [Suspect]
     Active Substance: AMPHETAMINE ASPARTATE\AMPHETAMINE SULFATE\DEXTROAMPHETAMINE SACCHARATE\DEXTROAMPHETAMINE SULFATE
     Indication: Attention deficit hyperactivity disorder
     Route: 065
     Dates: start: 20250409
  2. DEXTROAMPHETAMINE SACCHARATE, AMPHETAMINE ASPARTATE, DEXTROAMPHETAMINE [Suspect]
     Active Substance: AMPHETAMINE ASPARTATE\AMPHETAMINE SULFATE\DEXTROAMPHETAMINE SACCHARATE\DEXTROAMPHETAMINE SULFATE
     Indication: Attention deficit hyperactivity disorder
     Route: 065
     Dates: start: 202504

REACTIONS (17)
  - Confusional state [Unknown]
  - Disturbance in attention [Unknown]
  - Energy increased [Unknown]
  - Amnesia [Unknown]
  - Feeling abnormal [Unknown]
  - Feeling jittery [Unknown]
  - Asthenia [Unknown]
  - Fatigue [Unknown]
  - Drug intolerance [Unknown]
  - Nausea [Unknown]
  - Anxiety [Unknown]
  - Restlessness [Unknown]
  - Dizziness [Unknown]
  - Mania [Unknown]
  - Product quality issue [Unknown]
  - Therapeutic response changed [Unknown]
  - Product substitution issue [Unknown]

NARRATIVE: CASE EVENT DATE: 20250401
